FAERS Safety Report 6035378-9 (Version None)
Quarter: 2009Q1

REPORT INFORMATION
  Report Type: 
  Country: None (occurrence: None)
  Receive Date: 20090112
  Receipt Date: 20090112
  Transmission Date: 20090719
  Serious: Yes (Other)
  Sender: FDA-Public Use
  Company Number: None

PATIENT
  Sex: Female

DRUGS (1)
  1. PLAQUENIL MUST HAVE BRAND [Suspect]
     Dosage: 200 MG ONCE BID PO
     Route: 048

REACTIONS (1)
  - RASH GENERALISED [None]
